FAERS Safety Report 23191383 (Version 8)
Quarter: 2024Q2

REPORT INFORMATION
  Report Type: Spontaneous
  Country: BE (occurrence: BE)
  Receive Date: 20231116
  Receipt Date: 20240515
  Transmission Date: 20240716
  Serious: Yes (Hospitalization, Other)
  Sender: FDA-Public Use
  Company Number: BE-MYLANLABS-2023M1121759

PATIENT
  Age: 43 Year
  Sex: Male
  Weight: 68.4 kg

DRUGS (31)
  1. CASPOFUNGIN [Interacting]
     Active Substance: CASPOFUNGIN
     Indication: Bronchopulmonary aspergillosis
     Dosage: 50 MILLIGRAM, QD
     Route: 042
     Dates: start: 20220914, end: 20220926
  2. CASPOFUNGIN [Interacting]
     Active Substance: CASPOFUNGIN
     Indication: Cerebral nocardiosis
     Dosage: 50 MILLIGRAM, QD
     Route: 042
     Dates: start: 20221205, end: 20230331
  3. CASPOFUNGIN [Interacting]
     Active Substance: CASPOFUNGIN
     Indication: Evidence based treatment
  4. TACROLIMUS [Interacting]
     Active Substance: TACROLIMUS
     Indication: Immunosuppressant drug therapy
     Dosage: 4 MILLIGRAM, QD DOSE BASED UPON TDM (+- 3MG) BD
     Route: 048
     Dates: start: 202202, end: 20221125
  5. TACROLIMUS [Interacting]
     Active Substance: TACROLIMUS
     Indication: Prophylaxis against transplant rejection
  6. COTRIMOXAZOLE [Interacting]
     Active Substance: SULFAMETHOXAZOLE\TRIMETHOPRIM
     Indication: Nocardiosis
     Dosage: 1920 MILLIGRAM, QD (960 MILLIGRAM, BID, 2 TABLETS)
     Route: 048
     Dates: start: 20220926, end: 20221115
  7. COTRIMOXAZOLE [Interacting]
     Active Substance: SULFAMETHOXAZOLE\TRIMETHOPRIM
     Indication: Renal impairment
     Dosage: 2 DOSAGE FORM, Q8H 2 DOSAGE FORM, TID (2 TAB 3/DAY PO)
     Route: 048
     Dates: start: 20230105, end: 20230106
  8. COTRIMOXAZOLE [Interacting]
     Active Substance: SULFAMETHOXAZOLE\TRIMETHOPRIM
     Dosage: 2 DOSAGE FORM, Q6H, 2 DOSAGE FORM, QID (2 TAB 4/DAY PO)
     Route: 048
     Dates: start: 20221230, end: 20230104
  9. COTRIMOXAZOLE [Interacting]
     Active Substance: SULFAMETHOXAZOLE\TRIMETHOPRIM
     Dosage: UNK, UNKNOWN FREQ.
     Route: 048
     Dates: start: 20230106, end: 20230112
  10. POSACONAZOLE [Interacting]
     Active Substance: POSACONAZOLE
     Indication: Aspergillus infection
     Dosage: 300 MILLIGRAM, QD, ONCE DAILY
     Route: 048
     Dates: start: 20221007, end: 20221205
  11. POSACONAZOLE [Interacting]
     Active Substance: POSACONAZOLE
     Indication: Fungal infection
  12. POSACONAZOLE [Interacting]
     Active Substance: POSACONAZOLE
     Indication: Cerebral aspergillosis
  13. POSACONAZOLE [Interacting]
     Active Substance: POSACONAZOLE
     Indication: Drug therapy
  14. AMBISOME [Suspect]
     Active Substance: AMPHOTERICIN B
     Indication: Aspergillus infection
     Dosage: 3 MILLIGRAM/KILOGRAM, QD
     Route: 042
     Dates: start: 20221007, end: 20221110
  15. SIROLIMUS [Interacting]
     Active Substance: SIROLIMUS
     Indication: Prophylaxis against transplant rejection
     Dosage: UNK
     Route: 065
     Dates: start: 20221125
  16. AMPHOTERICIN B [Suspect]
     Active Substance: AMPHOTERICIN B
     Indication: Bronchopulmonary aspergillosis
     Dosage: 3 MILLIGRAM/KILOGRAM, QD
     Route: 042
     Dates: start: 20221007, end: 20221110
  17. TACROLIMUS [Interacting]
     Active Substance: TACROLIMUS
     Indication: Immunosuppressant drug therapy
     Dosage: 4 MILLIGRAM, QD, 2 MILLIGRAM, BID (BASED UPON TDM)
     Route: 048
     Dates: start: 202202, end: 20221125
  18. TACROLIMUS [Interacting]
     Active Substance: TACROLIMUS
     Indication: Prophylaxis against transplant rejection
  19. TACROLIMUS [Interacting]
     Active Substance: TACROLIMUS
     Indication: Heart transplant
  20. VORICONAZOLE [Concomitant]
     Active Substance: VORICONAZOLE
     Indication: Bronchopulmonary aspergillosis
     Dosage: 600 MILLIGRAM, QD, 300 MILLIGRAM, BID ((CHANGED BASED UPON TDM)
     Route: 042
     Dates: start: 20220902, end: 20231007
  21. MEROPENEM [Concomitant]
     Active Substance: MEROPENEM
     Indication: Central nervous system infection
     Dosage: 3 GRAM, QD (1 GRAM, TID)
     Route: 042
     Dates: start: 20220926, end: 20231110
  22. MEROPENEM [Concomitant]
     Active Substance: MEROPENEM
     Indication: Evidence based treatment
  23. MEROPENEM [Concomitant]
     Active Substance: MEROPENEM
     Indication: Bronchopulmonary aspergillosis
  24. MEROPENEM [Concomitant]
     Active Substance: MEROPENEM
     Indication: Cerebral nocardiosis
  25. VFEND [Concomitant]
     Active Substance: VORICONAZOLE
     Indication: Aspergillus infection
     Dosage: 300 MILLIGRAM, BID ((CHANGED BASED  UPON  TDM)
     Route: 042
     Dates: start: 20220902, end: 20231007
  26. CEFTRIAXONE [Concomitant]
     Active Substance: CEFTRIAXONE\CEFTRIAXONE SODIUM
     Indication: Nocardiosis
     Dosage: 2 GRAM, QD  ONCE DAILY
     Route: 042
     Dates: start: 20221115, end: 20230209
  27. CEFTRIAXONE [Concomitant]
     Active Substance: CEFTRIAXONE\CEFTRIAXONE SODIUM
     Dosage: 2 GRAM, QD  ONCE DAILY (26/JAN - 9/FEB: CEFTRIAXONE 2 G 2/DAY IV)
     Route: 042
  28. CEFTRIAXONE [Concomitant]
     Active Substance: CEFTRIAXONE\CEFTRIAXONE SODIUM
     Dosage: 2 GRAM, QD  ONCE DAILY (26/JAN - 9/FEB: CEFTRIAXONE 2 G 2/DAY IV)
     Route: 042
     Dates: end: 20230209
  29. CEFTRIAXONE [Concomitant]
     Active Substance: CEFTRIAXONE\CEFTRIAXONE SODIUM
     Dosage: 2 GRAM, QD  ONCE DAILY (26/JAN - 9/FEB: CEFTRIAXONE 2 G 2/DAY IV)
     Route: 042
  30. MYCOPHENOLIC ACID [Concomitant]
     Active Substance: MYCOPHENOLIC ACID
     Indication: Prophylaxis against transplant rejection
     Dosage: 2 GRAM, QD (1 GRAM, BID)
     Route: 048
     Dates: start: 20220213
  31. MYCOPHENOLIC ACID [Concomitant]
     Active Substance: MYCOPHENOLIC ACID
     Indication: Immunosuppressant drug therapy

REACTIONS (16)
  - Pancytopenia [Recovered/Resolved]
  - Microangiopathic haemolytic anaemia [Recovered/Resolved]
  - Acute kidney injury [Recovered/Resolved]
  - Brain abscess [Recovered/Resolved]
  - Candida infection [Recovered/Resolved]
  - Pulmonary nocardiosis [Recovered/Resolved]
  - Bronchopulmonary aspergillosis [Recovered/Resolved]
  - Fungal infection [Recovered/Resolved]
  - Drug ineffective [Unknown]
  - Condition aggravated [Unknown]
  - Respiratory distress [Unknown]
  - Drug interaction [Recovered/Resolved]
  - General physical health deterioration [Unknown]
  - Pyrexia [Unknown]
  - Labelled drug-drug interaction issue [Unknown]
  - Off label use [Unknown]

NARRATIVE: CASE EVENT DATE: 20221007
